FAERS Safety Report 8113151-5 (Version None)
Quarter: 2012Q1

REPORT INFORMATION
  Report Type: 
  Country: None (occurrence: None)
  Receive Date: 20120203
  Receipt Date: 20120127
  Transmission Date: 20120608
  Serious: Yes (Hospitalization)
  Sender: FDA-Public Use
  Company Number: US-ABBOTT-12P-163-0899079-00

PATIENT
  Sex: Female
  Weight: 83.99 kg

DRUGS (1)
  1. SYNTHROID [Suspect]
     Indication: HYPOTHYROIDISM
     Dates: start: 20070101, end: 20120101

REACTIONS (7)
  - HYPERTHYROIDISM [None]
  - VENTRICULAR EXTRASYSTOLES [None]
  - ARRHYTHMIA [None]
  - CHEST DISCOMFORT [None]
  - MALAISE [None]
  - CHEST PAIN [None]
  - DYSPEPSIA [None]
